FAERS Safety Report 7041721-4 (Version None)
Quarter: 2010Q4

REPORT INFORMATION
  Report Type: 
  Country: None (occurrence: None)
  Receive Date: 20101013
  Receipt Date: 20100712
  Transmission Date: 20110411
  Serious: No
  Sender: FDA-Public Use
  Company Number: US-ASTRAZENECA-2010SE32386

PATIENT
  Sex: Male
  Weight: 104.3 kg

DRUGS (1)
  1. SYMBICORT [Suspect]
     Indication: ASTHMA
     Dosage: 80/4.5 MCG 2 PUFFS
     Route: 055
     Dates: start: 20100301, end: 20100301

REACTIONS (4)
  - CONDITION AGGRAVATED [None]
  - DRUG DOSE OMISSION [None]
  - DYSPHONIA [None]
  - WRONG DRUG ADMINISTERED [None]
